FAERS Safety Report 9678250 (Version 1)
Quarter: 2013Q4

REPORT INFORMATION
  Report Type: Spontaneous
  Country: CA (occurrence: CA)
  Receive Date: 20131108
  Receipt Date: 20131108
  Transmission Date: 20140711
  Serious: Yes (Hospitalization)
  Sender: FDA-Public Use
  Company Number: CA-TEVA-443052USA

PATIENT
  Age: 60 Year
  Sex: Female

DRUGS (5)
  1. TEVA-TAMOXIFEN [Suspect]
     Indication: BREAST CANCER
     Dosage: 20 MILLIGRAM DAILY;
     Dates: start: 20121201
  2. CALCIUM [Concomitant]
  3. VITAMIN D [Concomitant]
     Dosage: 10,000 U/WEEK
  4. DOM-ALENDRONATE [Concomitant]
  5. HYPNOTIC [Concomitant]

REACTIONS (3)
  - Organising pneumonia [Not Recovered/Not Resolved]
  - Cough [Not Recovered/Not Resolved]
  - Dyspnoea [Not Recovered/Not Resolved]
